FAERS Safety Report 10466647 (Version 2)
Quarter: 2014Q3

REPORT INFORMATION
  Report Type: Spontaneous
  Country: AU (occurrence: NZ)
  Receive Date: 20140922
  Receipt Date: 20140922
  Transmission Date: 20150326
  Serious: Yes (Other)
  Sender: FDA-Public Use
  Company Number: AU-BAYER-2014-134600

PATIENT
  Sex: Female

DRUGS (1)
  1. BETAFERON [Suspect]
     Active Substance: INTERFERON BETA-1B
     Dosage: 8 MIU, QOD
     Dates: start: 201405

REACTIONS (3)
  - White blood cell count decreased [None]
  - Gastric infection [None]
  - Neutrophil count decreased [None]

NARRATIVE: CASE EVENT DATE: 2014
